FAERS Safety Report 11888376 (Version 1)
Quarter: 2016Q1

REPORT INFORMATION
  Report Type: Other
  Country: TR (occurrence: TR)
  Receive Date: 20160105
  Receipt Date: 20160105
  Transmission Date: 20160526
  Serious: Yes (Other)
  Sender: FDA-Public Use
  Company Number: TR-EMD SERONO-8061216

PATIENT
  Age: 55 Year
  Sex: Male

DRUGS (1)
  1. INTERFERON BETA-1A [Suspect]
     Active Substance: INTERFERON BETA-1A
     Indication: MULTIPLE SCLEROSIS

REACTIONS (7)
  - Nervous system disorder [Unknown]
  - Cerebral infarction [Unknown]
  - Muscular weakness [Unknown]
  - Central nervous system lesion [Unknown]
  - Paresis [Unknown]
  - Sjogren^s syndrome [Unknown]
  - Folliculitis [Unknown]

NARRATIVE: CASE EVENT DATE: 2005
